FAERS Safety Report 5871840-7 (Version None)
Quarter: 2008Q3

REPORT INFORMATION
  Report Type: 
  Country: None (occurrence: None)
  Receive Date: 20080905
  Receipt Date: 20080827
  Transmission Date: 20090109
  Serious: Yes (Other)
  Sender: FDA-Public Use
  Company Number: US-AMGEN-US183108

PATIENT
  Sex: Female
  Weight: 77.2 kg

DRUGS (18)
  1. ENBREL [Suspect]
     Indication: RHEUMATOID ARTHRITIS
     Dates: start: 20050815, end: 20060418
  2. VITAMIN TAB [Concomitant]
     Route: 048
     Dates: start: 20050815, end: 20060131
  3. ASCORBIC ACID [Concomitant]
     Route: 048
     Dates: start: 20050815, end: 20060418
  4. IRON [Concomitant]
     Route: 048
     Dates: start: 20050815, end: 20060418
  5. NAPROXEN [Concomitant]
     Route: 048
     Dates: start: 20050815, end: 20051218
  6. PREDNISONE [Concomitant]
     Route: 048
     Dates: start: 20050816, end: 20060418
  7. AMPICILLIN [Concomitant]
     Dates: start: 20051024, end: 20051031
  8. ASPIRIN [Concomitant]
     Route: 048
     Dates: start: 20050815, end: 20060418
  9. FISH OIL [Concomitant]
     Route: 048
     Dates: start: 20051206, end: 20060418
  10. CALCIUM WITH VITAMIN D [Concomitant]
     Route: 048
     Dates: start: 20051228, end: 20060418
  11. INFLUENZA VACCINE [Concomitant]
     Dates: start: 20051107, end: 20051107
  12. ALEVE [Concomitant]
     Route: 048
     Dates: start: 20051225, end: 20060103
  13. LOPERAMIDE HCL [Concomitant]
     Dates: start: 20051118, end: 20051119
  14. MULTI-VITAMINS [Concomitant]
     Dates: start: 20060201, end: 20060418
  15. PENICILLIN [Concomitant]
     Route: 048
     Dates: start: 20060125, end: 20060130
  16. RANITIDINE [Concomitant]
     Route: 048
     Dates: start: 20050815, end: 20060418
  17. TYLENOL (CAPLET) [Concomitant]
     Route: 048
     Dates: start: 20060329, end: 20060331
  18. TUMS [Concomitant]
     Route: 048
     Dates: start: 20060329, end: 20060330

REACTIONS (1)
  - PREMATURE LABOUR [None]
